FAERS Safety Report 13447473 (Version 1)
Quarter: 2017Q2

REPORT INFORMATION
  Report Type: Spontaneous
  Country: US (occurrence: US)
  Receive Date: 20170414
  Receipt Date: 20170414
  Transmission Date: 20170830
  Serious: No
  Sender: FDA-Public Use
  Company Number: None

PATIENT
  Sex: Female

DRUGS (1)
  1. IBRANCE [Suspect]
     Active Substance: PALBOCICLIB
     Indication: BREAST CANCER FEMALE
     Dosage: 100MG DAILY FOR 21 DAYS ON AND 7 DAYS OFF PO
     Route: 048
     Dates: start: 20160501

REACTIONS (3)
  - White blood cell count decreased [None]
  - Therapy cessation [None]
  - Night sweats [None]
